FAERS Safety Report 9556481 (Version 1)
Quarter: 2013Q3

REPORT INFORMATION
  Report Type: Report from Study
  Country: IN (occurrence: IN)
  Receive Date: 20130926
  Receipt Date: 20130926
  Transmission Date: 20140515
  Serious: Yes (Other)
  Sender: FDA-Public Use
  Company Number: IN-SANOFI-AVENTIS-2013SA093227

PATIENT
  Sex: 0

DRUGS (4)
  1. ISONIAZID [Suspect]
     Indication: PULMONARY TUBERCULOSIS
     Route: 065
  2. PYRAZINAMIDE [Suspect]
     Indication: PULMONARY TUBERCULOSIS
     Dosage: FOR FIRST TWO MONTHS
     Route: 065
  3. RIFAMPICIN [Suspect]
     Indication: PULMONARY TUBERCULOSIS
     Route: 065
  4. GATIFLOXACIN [Suspect]
     Indication: PULMONARY TUBERCULOSIS
     Route: 065

REACTIONS (1)
  - Electrocardiogram QT prolonged [Unknown]
